FAERS Safety Report 5726105-0 (Version None)
Quarter: 2008Q2

REPORT INFORMATION
  Report Type: 
  Country: None (occurrence: None)
  Receive Date: 20080501
  Receipt Date: 20080501
  Transmission Date: 20081010
  Serious: Yes (Other)
  Sender: FDA-Public Use
  Company Number: None

PATIENT
  Age: 61 Year
  Sex: Male
  Weight: 77.1115 kg

DRUGS (2)
  1. DIGOXIN [Suspect]
     Indication: ATRIAL FIBRILLATION
     Dosage: .25  DAILY PO
     Route: 048
     Dates: start: 19920101, end: 20080429
  2. DIGOXIN [Suspect]
     Indication: MITRAL VALVE PROLAPSE
     Dosage: .25  DAILY PO
     Route: 048
     Dates: start: 19920101, end: 20080429

REACTIONS (4)
  - ASTHENIA [None]
  - CHEST DISCOMFORT [None]
  - HEADACHE [None]
  - PHARMACEUTICAL PRODUCT COMPLAINT [None]
